FAERS Safety Report 10549121 (Version 1)
Quarter: 2014Q4

REPORT INFORMATION
  Report Type: Spontaneous
  Country: US (occurrence: None)
  Receive Date: 20141016
  Receipt Date: 20141016
  Transmission Date: 20150529
  Serious: No
  Sender: FDA-Public Use
  Company Number: CABO-14004374

PATIENT
  Age: 67 Year
  Sex: Male
  Weight: 67.7 kg

DRUGS (1)
  1. COMETRIQ [Suspect]
     Active Substance: CABOZANTINIB S-MALATE
     Indication: THYROID CANCER
     Route: 048
     Dates: start: 20140502, end: 20140524

REACTIONS (9)
  - Fatigue [None]
  - Nausea [None]
  - Toxicity to various agents [None]
  - Ageusia [None]
  - Oropharyngeal pain [None]
  - Limb discomfort [None]
  - Blood pressure increased [None]
  - Blister [None]
  - Glossodynia [None]

NARRATIVE: CASE EVENT DATE: 2014
